FAERS Safety Report 6753571-4 (Version None)
Quarter: 2010Q2

REPORT INFORMATION
  Report Type: 
  Country: None (occurrence: None)
  Receive Date: 20100528
  Receipt Date: 20100517
  Transmission Date: 20101027
  Serious: Yes (Disabling)
  Sender: FDA-Public Use
  Company Number: 591419

PATIENT
  Age: 46 Day
  Sex: Male

DRUGS (7)
  1. VINCRISTINE SULFATE [Suspect]
     Indication: PRECURSOR B-LYMPHOBLASTIC LYMPHOMA
     Dosage: .2 MG MILLIGRAM(S)
     Route: 042
  2. PREDNISONE [Concomitant]
  3. DEXAMETHASONE [Concomitant]
  4. DAUNORUBICIN HCL [Concomitant]
  5. L-ASPARAGINASE [Concomitant]
  6. CYTARABINE [Concomitant]
  7. METHOTREXATE [Concomitant]

REACTIONS (5)
  - BRADYCARDIA [None]
  - EYELID PTOSIS [None]
  - NEUROPATHY PERIPHERAL [None]
  - OXYGEN SATURATION DECREASED [None]
  - PARALYSIS FLACCID [None]
